FAERS Safety Report 10708050 (Version 1)
Quarter: 2015Q1

REPORT INFORMATION
  Report Type: Spontaneous
  Country: US (occurrence: US)
  Receive Date: 20150113
  Receipt Date: 20150113
  Transmission Date: 20150721
  Serious: No
  Sender: FDA-Public Use
  Company Number: US-PFIZER INC-2015000038

PATIENT
  Age: 54 Year
  Sex: Female
  Weight: 91 kg

DRUGS (4)
  1. RAPAMUNE [Suspect]
     Active Substance: SIROLIMUS
     Dosage: 2 MG, UNK
  2. RAPAMUNE [Suspect]
     Active Substance: SIROLIMUS
     Dosage: 4 MG, UNK
  3. RAPAMUNE [Suspect]
     Active Substance: SIROLIMUS
     Indication: IMMUNOSUPPRESSANT DRUG THERAPY
     Dosage: UNKNOWN DOSE
     Dates: start: 2013
  4. RAPAMUNE [Suspect]
     Active Substance: SIROLIMUS
     Dosage: 3 MG, UNK

REACTIONS (6)
  - Pain [Recovering/Resolving]
  - Off label use [Unknown]
  - Headache [Recovered/Resolved]
  - Muscle spasms [Unknown]
  - Hypoaesthesia [Unknown]
  - Nightmare [Recovered/Resolved]
